FAERS Safety Report 5449779-0 (Version None)
Quarter: 2007Q3

REPORT INFORMATION
  Report Type: 
  Country: None (occurrence: None)
  Receive Date: 20070910
  Receipt Date: 20070824
  Transmission Date: 20080115
  Serious: Yes (Other)
  Sender: FDA-Public Use
  Company Number: DSA_30473_2007

PATIENT
  Sex: Male

DRUGS (14)
  1. TILDIEM (TILDIEM - DILTIAZEM HYDROCHYLORIDE) (NOT SPECIFIED) [Suspect]
     Indication: PULMONARY HYPERTENSION
     Dosage: 60 MG BID ORAL;  FEW YEARS
     Route: 048
  2. ATARAX [Concomitant]
  3. ATHYMIL [Concomitant]
  4. INEXIUM [Concomitant]
  5. KARDEGIC [Concomitant]
  6. BRONCHODUAL [Concomitant]
  7. DIANTALVIC [Concomitant]
  8. DEBRIDAT [Concomitant]
  9. DUPHALAC [Concomitant]
  10. CALCIDIA [Concomitant]
  11. LEVOTHYROX [Concomitant]
  12. ALFA D [Concomitant]
  13. BEPANTHENE [Concomitant]
  14. UN-ALFA [Concomitant]

REACTIONS (3)
  - FURUNCLE [None]
  - NO REACTION ON PREVIOUS EXPOSURE TO DRUG [None]
  - SKIN INFECTION [None]
